FAERS Safety Report 14418972 (Version 1)
Quarter: 2018Q1

REPORT INFORMATION
  Report Type: Spontaneous
  Country: TW (occurrence: TW)
  Receive Date: 20180122
  Receipt Date: 20180122
  Transmission Date: 20180509
  Serious: Yes (Death, Other)
  Sender: FDA-Public Use
  Company Number: TW-ASTELLAS-2018US003924

PATIENT
  Age: 19 Year
  Sex: Female

DRUGS (5)
  1. IMMUNOGLOBULIN                     /00025201/ [Concomitant]
     Active Substance: HUMAN IMMUNOGLOBULIN G
     Indication: HYPERBILIRUBINAEMIA
     Dosage: UNK UNK, UNKNOWN FREQ.
     Route: 042
  2. MICAFUNGIN [Suspect]
     Active Substance: MICAFUNGIN
     Indication: PRODUCT USED FOR UNKNOWN INDICATION
     Dosage: UNK UNK, UNKNOWN FREQ.
     Route: 065
  3. MYCOPHENOLATE [Suspect]
     Active Substance: MYCOPHENOLIC ACID
     Indication: HYPERBILIRUBINAEMIA
     Dosage: UNK UNK, UNKNOWN FREQ.
     Route: 065
  4. METHYLPREDNISOLONE. [Concomitant]
     Active Substance: METHYLPREDNISOLONE
     Indication: GRAFT VERSUS HOST DISEASE IN LIVER
     Route: 042
  5. RITUXIMAB. [Suspect]
     Active Substance: RITUXIMAB
     Indication: AUTOIMMUNE HAEMOLYTIC ANAEMIA
     Route: 065

REACTIONS (3)
  - Drug-induced liver injury [Unknown]
  - Multiple organ dysfunction syndrome [Fatal]
  - Hepatic failure [Fatal]
